FAERS Safety Report 9847343 (Version 2)
Quarter: 2014Q3

REPORT INFORMATION
  Report Type: Spontaneous
  Country: US (occurrence: US)
  Receive Date: 20140127
  Receipt Date: 20140725
  Transmission Date: 20150326
  Serious: Yes (Hospitalization, Other)
  Sender: FDA-Public Use
  Company Number: US-009507513-1401USA011492

PATIENT
  Sex: Female

DRUGS (1)
  1. NUVARING [Suspect]
     Active Substance: ETHINYL ESTRADIOL\ETONOGESTREL
     Indication: CONTRACEPTION
     Dosage: UNK
     Route: 067
     Dates: end: 20120625

REACTIONS (9)
  - Small intestinal resection [Unknown]
  - Gastrointestinal necrosis [Recovered/Resolved]
  - Mesenteric vein thrombosis [Unknown]
  - Haemorrhagic anaemia [Recovering/Resolving]
  - Laparoscopic surgery [Unknown]
  - Menorrhagia [Unknown]
  - Systemic inflammatory response syndrome [Unknown]
  - Laparoscopy [Unknown]
  - Transfusion [Recovering/Resolving]

NARRATIVE: CASE EVENT DATE: 20120618
